FAERS Safety Report 23753392 (Version 1)
Quarter: 2024Q2

REPORT INFORMATION
  Report Type: Spontaneous
  Country: IT (occurrence: IT)
  Receive Date: 20240417
  Receipt Date: 20240417
  Transmission Date: 20240716
  Serious: Yes (Hospitalization, Other)
  Sender: FDA-Public Use
  Company Number: IT-SANDOZ-SDZ2024IT039864

PATIENT
  Age: 5 Year
  Sex: Male

DRUGS (1)
  1. RISPERIDONE [Suspect]
     Active Substance: RISPERIDONE
     Indication: Product used for unknown indication
     Dosage: 0.25 MG
     Route: 048

REACTIONS (6)
  - Accidental overdose [Unknown]
  - Salivary hypersecretion [Unknown]
  - Dystonia [Unknown]
  - Somnolence [Unknown]
  - Dyskinesia [Unknown]
  - Gait disturbance [Unknown]
